FAERS Safety Report 11365907 (Version 1)
Quarter: 2015Q3

REPORT INFORMATION
  Report Type: Spontaneous
  Country: JP (occurrence: JP)
  Receive Date: 20150811
  Receipt Date: 20150811
  Transmission Date: 20151125
  Serious: Yes (Other)
  Sender: FDA-Public Use
  Company Number: JP-PFIZER INC-2015261855

PATIENT
  Age: 37 Year
  Sex: Male

DRUGS (1)
  1. CABASER [Suspect]
     Active Substance: CABERGOLINE
     Indication: PROLACTIN-PRODUCING PITUITARY TUMOUR
     Dosage: UNK
     Route: 048

REACTIONS (1)
  - Cerebrospinal fluid leakage [Recovered/Resolved]
